FAERS Safety Report 14451309 (Version 1)
Quarter: 2018Q1

REPORT INFORMATION
  Report Type: Spontaneous
  Country: US (occurrence: US)
  Receive Date: 20180129
  Receipt Date: 20180129
  Transmission Date: 20180509
  Serious: No
  Sender: FDA-Public Use
  Company Number: US-ABBVIE-17K-163-2194256-00

PATIENT
  Sex: Female

DRUGS (3)
  1. ENBREL [Concomitant]
     Active Substance: ETANERCEPT
     Indication: ALOPECIA AREATA
  2. HUMIRA [Suspect]
     Active Substance: ADALIMUMAB
     Indication: ALOPECIA AREATA
     Route: 058
  3. ORENCIA [Concomitant]
     Active Substance: ABATACEPT
     Indication: ALOPECIA AREATA

REACTIONS (1)
  - Alopecia areata [Recovered/Resolved]
